FAERS Safety Report 24440301 (Version 1)
Quarter: 2024Q4

REPORT INFORMATION
  Report Type: Spontaneous
  Country: US (occurrence: US)
  Receive Date: 20241016
  Receipt Date: 20241016
  Transmission Date: 20250115
  Serious: Yes (Death, Other)
  Sender: ARGENX BVBA
  Company Number: US-ARGENX-2024-ARGX-US008955

PATIENT

DRUGS (1)
  1. VYVGART HYTRULO [Suspect]
     Active Substance: EFGARTIGIMOD ALFA\HYALURONIDASE-QVFC
     Indication: Myasthenia gravis
     Dosage: UNK
     Route: 065

REACTIONS (2)
  - Abdominal abscess [Fatal]
  - Postoperative abscess [Fatal]
